FAERS Safety Report 25870733 (Version 1)
Quarter: 2025Q4

REPORT INFORMATION
  Report Type: Report from Study
  Country: EU (occurrence: EU)
  Receive Date: 20251001
  Receipt Date: 20251001
  Transmission Date: 20260117
  Serious: Yes (Death, Other)
  Sender: TAKEDA
  Company Number: EU-TAKEDA-2025TUS085855

PATIENT
  Age: 69 Year
  Sex: Female

DRUGS (1)
  1. HUMAN IMMUNOGLOBULIN G\HYALURONIDASE RECOMBINANT HUMAN [Suspect]
     Active Substance: HUMAN IMMUNOGLOBULIN G\HYALURONIDASE (HUMAN RECOMBINANT)
     Indication: Immunodeficiency
     Dosage: 300 MILLILITER, MONTHLY
     Dates: start: 202403

REACTIONS (6)
  - Multiple organ dysfunction syndrome [Fatal]
  - Plasma cell myeloma [Fatal]
  - Cerebral haemorrhage [Fatal]
  - Respiratory tract infection [Fatal]
  - Brain neoplasm [Fatal]
  - Cerebrovascular accident [Fatal]
